FAERS Safety Report 8405044 (Version 4)
Quarter: 2012Q4

REPORT INFORMATION
  Report Type: 
  Country: JP (occurrence: JP)
  Receive Date: 20120214
  Receipt Date: 20121214
  Transmission Date: 20130627
  Serious: Yes (Hospitalization, Disabling)
  Sender: FDA-Public Use
  Company Number: JP-PFIZER INC-2011235862

PATIENT
  Age: 69 Year
  Sex: Male
  Weight: 63.45 kg

DRUGS (37)
  1. AXITINIB [Suspect]
     Indication: METASTATIC RENAL CELL CARCINOMA
     Dosage: 5 mg, 2x/day
     Route: 048
     Dates: start: 20101116, end: 20110714
  2. AXITINIB [Suspect]
     Dosage: 5 mg, 2x/day
     Route: 048
     Dates: start: 20110729, end: 20110818
  3. AXITINIB [Suspect]
     Dosage: 5 mg, 2x/day
     Route: 048
     Dates: start: 20110827, end: 20110926
  4. PLACEBO [Suspect]
     Indication: METASTATIC RENAL CELL CARCINOMA
     Dosage: UNK mg, 2x/day
     Route: 048
     Dates: start: 20101214, end: 20110714
  5. DECADRON [Suspect]
     Indication: PYREXIA
     Dosage: UNK mg, 1x/day
     Route: 048
     Dates: start: 20110618, end: 20110824
  6. DECADRON [Suspect]
     Dosage: 0.5 mg, 1x/day
     Route: 048
     Dates: start: 20110825, end: 20111013
  7. DECADRON [Suspect]
     Dosage: 1 mg, 1x/day
     Route: 048
     Dates: start: 20111014, end: 20111028
  8. DECADRON [Suspect]
     Dosage: 2 mg, 1x/day
     Route: 048
     Dates: start: 20111029
  9. OXYCONTIN [Suspect]
     Indication: CHRONIC PAIN
     Dosage: 10 mg, 2x/day
     Route: 048
     Dates: start: 20101103, end: 20101217
  10. OXYCONTIN [Suspect]
     Dosage: 20 mg, 2x/day
     Route: 048
     Dates: start: 20101218, end: 20110304
  11. OXYCONTIN [Suspect]
     Dosage: 30 mg, 2x/day
     Route: 048
     Dates: start: 20110304, end: 20110506
  12. OXYCONTIN [Suspect]
     Dosage: 40 mg, 2x/day
     Route: 048
     Dates: start: 20110507, end: 20110616
  13. OXYCONTIN [Suspect]
     Dosage: 50 mg, 2x/day
     Route: 048
     Dates: start: 20110617
  14. OXINORM [Suspect]
     Indication: PAIN
     Dosage: 10 mg, 2x/day
     Route: 048
     Dates: start: 20101103, end: 20101217
  15. OXINORM [Suspect]
     Dosage: 20 mg, 2x/day
     Route: 048
     Dates: start: 20101218, end: 20110304
  16. OXINORM [Suspect]
     Dosage: 30 mg, 2x/day
     Route: 048
     Dates: start: 20110304, end: 20110506
  17. OXINORM [Suspect]
     Dosage: 40 mg, 2x/day
     Route: 048
     Dates: start: 20110507, end: 20110616
  18. OXINORM [Suspect]
     Dosage: 50 mg, 2x/day
     Route: 048
     Dates: start: 20110617
  19. PURSENNID [Concomitant]
     Indication: CONSTIPATION
     Dosage: 24 mg, as needed
     Route: 048
     Dates: start: 20101103
  20. MAGNESIUM OXIDE [Concomitant]
     Indication: CONSTIPATION
     Dosage: 0.5 g, 3x/day
     Route: 048
     Dates: start: 20101103
  21. TELEMINSOFT [Concomitant]
     Indication: CONSTIPATION
     Dosage: 4 mg, as needed
     Dates: start: 20101109
  22. TAKEPRON [Concomitant]
     Indication: CHRONIC GASTRITIS
     Dosage: 15 mg, 1x/day
     Route: 048
     Dates: start: 20101112
  23. HIRUDOID [Concomitant]
     Indication: HAND AND FOOT SYNDROME
     Dosage: Optimal dose, 3 or 4 times/day
     Dates: start: 20101118
  24. HIRUDOID [Concomitant]
     Indication: PROPHYLAXIS NOS
  25. LAC B [Concomitant]
     Indication: DIARRHEA
     Dosage: 2 g, 3x/day
     Route: 048
     Dates: start: 20110326
  26. GASMOTIN [Concomitant]
     Indication: ANOREXIA
     Dosage: 5 mg, 3x/day
     Route: 048
     Dates: start: 20110401
  27. CALONAL [Concomitant]
     Indication: PYREXIA
     Dosage: 2000 mg, 1x/day
     Route: 048
     Dates: start: 20110608, end: 20110916
  28. MOBIC [Concomitant]
     Indication: INTERVERTEBRAL DISC HERNIATION
     Dosage: 10 mg, 1x/day
     Route: 048
     Dates: start: 20101104, end: 20110916
  29. MUCOSTA [Concomitant]
     Indication: GASTRIC MUCOSAL LESION NOS
     Dosage: 100 mg, 3x/day
     Route: 048
     Dates: start: 20110628
  30. OLMETEC [Concomitant]
     Indication: HYPERTENSION
     Dosage: 20 mg, 1x/day
     Route: 048
     Dates: start: 20110831
  31. DAI-KENCHU-TO [Concomitant]
     Indication: ABDOMINAL DISTENSION
     Dosage: 1 DF, 3x/day
     Route: 048
     Dates: start: 20110729
  32. TERNELIN [Concomitant]
     Indication: CHRONIC PAIN
     Dosage: 1 mg, 3x/day
     Route: 048
     Dates: start: 20110826
  33. PRORENAL [Concomitant]
     Indication: CHRONIC PAIN
     Dosage: 5 ug, 3x/day
     Route: 048
     Dates: start: 20110826
  34. ZOMETA [Concomitant]
     Indication: RENAL CELL CARCINOMA
     Dosage: 4 mg, 1x/day
     Route: 042
     Dates: start: 20110922, end: 20110922
  35. NORVASC [Concomitant]
     Indication: HYPERTENSION
     Dosage: 10 mg, 1x/day
     Route: 048
     Dates: start: 20110920
  36. VEEN D [Concomitant]
     Indication: FLUID REPLACEMENT
     Dosage: 500 ml, 2x/day
     Route: 042
     Dates: start: 20110927, end: 20110927
  37. AMLODIN [Concomitant]
     Indication: HYPERTENSION
     Dosage: 5 mg, 1x/day
     Route: 048
     Dates: start: 20110711, end: 20110717

REACTIONS (5)
  - Enterocolitis [Recovered/Resolved]
  - Extradural abscess [Not Recovered/Not Resolved]
  - Vomiting [Recovered/Resolved]
  - Abdominal distension [Recovered/Resolved]
  - Pyrexia [Recovered/Resolved]
